FAERS Safety Report 8315731-0 (Version None)
Quarter: 2012Q2

REPORT INFORMATION
  Report Type: 
  Country: None (occurrence: None)
  Receive Date: 20120426
  Receipt Date: 20120424
  Transmission Date: 20120825
  Serious: Yes (Hospitalization, Other)
  Sender: FDA-Public Use
  Company Number: US-MERCK-1103USA03933

PATIENT
  Age: 59 Year
  Sex: Female
  Weight: 64 kg

DRUGS (11)
  1. SPRING VALLEY LUTEIN VISION [Concomitant]
     Route: 065
     Dates: start: 19950101
  2. FOLIC ACID [Concomitant]
     Route: 065
     Dates: start: 19960101
  3. FOSAMAX [Suspect]
     Indication: OSTEOPOROSIS
     Route: 048
     Dates: start: 19980101
  4. ONE-A-DAY ESSENTIAL VITAMINS [Concomitant]
     Route: 065
     Dates: start: 19910101
  5. NEXIUM [Concomitant]
     Route: 065
     Dates: start: 19960101
  6. FOSAMAX [Suspect]
     Route: 048
     Dates: start: 20000323, end: 20011201
  7. HORMONES (UNSPECIFIED) [Concomitant]
     Route: 065
  8. ALENDRONATE SODIUM [Suspect]
     Indication: OSTEOPOROSIS
     Route: 048
     Dates: start: 20080807, end: 20100103
  9. FOSAMAX [Suspect]
     Route: 048
     Dates: start: 20020301, end: 20100103
  10. B COMPLEX 100 [Concomitant]
     Route: 065
     Dates: start: 19960101
  11. FOSAMAX [Suspect]
     Route: 048
     Dates: start: 20090330

REACTIONS (81)
  - GASTROINTESTINAL DISORDER [None]
  - DEEP VEIN THROMBOSIS [None]
  - OSTEOARTHRITIS [None]
  - NEUROPATHY PERIPHERAL [None]
  - POOR QUALITY SLEEP [None]
  - ARTERIOSCLEROSIS [None]
  - CARPAL TUNNEL SYNDROME [None]
  - ADVERSE DRUG REACTION [None]
  - GAIT DISTURBANCE [None]
  - CERVICAL SPINAL STENOSIS [None]
  - GASTRITIS [None]
  - FOOT FRACTURE [None]
  - HERPES ZOSTER [None]
  - TOXIC NEUROPATHY [None]
  - LUNG NEOPLASM [None]
  - LUNG DISORDER [None]
  - INSOMNIA [None]
  - HYPERLIPIDAEMIA [None]
  - DRUG ADMINISTRATION ERROR [None]
  - TENOSYNOVITIS STENOSANS [None]
  - BLOOD CHOLESTEROL INCREASED [None]
  - VOMITING [None]
  - BURSITIS [None]
  - TRIGGER FINGER [None]
  - FOOT DEFORMITY [None]
  - SINUSITIS [None]
  - ANKLE FRACTURE [None]
  - FALL [None]
  - NERVOUSNESS [None]
  - THROMBOPHLEBITIS [None]
  - LUMBAR SPINE FLATTENING [None]
  - PLEURAL DISORDER [None]
  - NIGHT SWEATS [None]
  - HYPERPARATHYROIDISM [None]
  - DRUG HYPERSENSITIVITY [None]
  - DIVERTICULUM [None]
  - BREAST CALCIFICATIONS [None]
  - ANAEMIA POSTOPERATIVE [None]
  - CAROTID ARTERY STENOSIS [None]
  - HYPOXIA [None]
  - PULMONARY EMBOLISM [None]
  - ABDOMINAL PAIN [None]
  - CONTUSION [None]
  - GRANULOMA [None]
  - SYNOVIAL CYST [None]
  - SPINAL DISORDER [None]
  - HYPERTENSION [None]
  - URTICARIA [None]
  - FEMUR FRACTURE [None]
  - CUBITAL TUNNEL SYNDROME [None]
  - TRANSIENT ISCHAEMIC ATTACK [None]
  - ARTHRALGIA [None]
  - COLONIC POLYP [None]
  - GASTROOESOPHAGEAL REFLUX DISEASE [None]
  - ROTATOR CUFF SYNDROME [None]
  - BACK PAIN [None]
  - SLEEP APNOEA SYNDROME [None]
  - INJURY [None]
  - COMPLEX PARTIAL SEIZURES [None]
  - CHILLS [None]
  - RHINITIS ALLERGIC [None]
  - RADICULITIS CERVICAL [None]
  - METAL POISONING [None]
  - INTESTINAL PERFORATION [None]
  - INCORRECT DOSE ADMINISTERED [None]
  - DIARRHOEA [None]
  - BREAST DISORDER [None]
  - BRONCHITIS [None]
  - OVERDOSE [None]
  - THROMBOSIS [None]
  - HIATUS HERNIA [None]
  - FLATULENCE [None]
  - PULMONARY HYPERTENSION [None]
  - ULCER [None]
  - TARSAL TUNNEL SYNDROME [None]
  - CHEMICAL POISONING [None]
  - LIBIDO DECREASED [None]
  - HYPERGLYCAEMIA [None]
  - DEPRESSION [None]
  - BREAST MASS [None]
  - ANXIETY [None]
